FAERS Safety Report 18403378 (Version 2)
Quarter: 2020Q4

REPORT INFORMATION
  Report Type: Spontaneous
  Country: US (occurrence: US)
  Receive Date: 20201020
  Receipt Date: 20201109
  Transmission Date: 20210114
  Serious: No
  Sender: FDA-Public Use
  Company Number: NVSC2020US276787

PATIENT
  Sex: Male

DRUGS (1)
  1. BRIMONIDINE TARTRATE. [Suspect]
     Active Substance: BRIMONIDINE TARTRATE
     Indication: PRODUCT USED FOR UNKNOWN INDICATION
     Dosage: 5 ML
     Route: 065

REACTIONS (4)
  - Dry eye [Unknown]
  - Therapeutic product ineffective [Unknown]
  - Ocular hyperaemia [Unknown]
  - Eye irritation [Unknown]
